FAERS Safety Report 10034396 (Version 1)
Quarter: 2014Q1

REPORT INFORMATION
  Report Type: Spontaneous
  Country: US (occurrence: None)
  Receive Date: 20140324
  Receipt Date: 20140324
  Transmission Date: 20141002
  Serious: Yes (Life-Threatening, Hospitalization)
  Sender: FDA-Public Use
  Company Number: None

PATIENT
  Age: 56 Year
  Sex: Male

DRUGS (2)
  1. ANDROGEL [Suspect]
     Indication: BLOOD TESTOSTERONE DECREASED
     Dosage: 10MG DAILY, ONCE DAILY, APPLIE TO A SURFACE, USUALLY THE SKIN.
  2. TESTIM [Suspect]

REACTIONS (4)
  - Myocardial infarction [None]
  - Cardiac arrest [None]
  - Respiratory arrest [None]
  - Coronary artery occlusion [None]
